FAERS Safety Report 4717674-8 (Version None)
Quarter: 2005Q3

REPORT INFORMATION
  Report Type: 
  Country: None (occurrence: None)
  Receive Date: 20050713
  Receipt Date: 20041011
  Transmission Date: 20060218
  Serious: Yes (Other)
  Sender: FDA-Public Use
  Company Number: 2004238434US

PATIENT
  Sex: Male
  Weight: 95.2 kg

DRUGS (8)
  1. DEPO-MEDROL [Suspect]
     Indication: SURGERY
     Dosage: 80 ML, SINGLE; 120 ML, SINGLE
     Dates: start: 20000101
  2. DEPO-MEDROL [Suspect]
     Indication: SURGERY
     Dosage: 80 ML, SINGLE; 120 ML, SINGLE
     Dates: start: 20010101
  3. LORTAB [Concomitant]
  4. SOMA [Concomitant]
  5. FENTANYL [Concomitant]
  6. PEPCID [Concomitant]
  7. VERSED [Concomitant]
  8. CEFAZOLIN [Concomitant]

REACTIONS (3)
  - ARACHNOIDITIS [None]
  - DRUG ADMINISTRATION ERROR [None]
  - SPINAL CORD PARALYSIS [None]
